FAERS Safety Report 14777768 (Version 2)
Quarter: 2018Q2

REPORT INFORMATION
  Report Type: Spontaneous
  Country: ES (occurrence: ES)
  Receive Date: 20180419
  Receipt Date: 20180510
  Transmission Date: 20180711
  Serious: Yes (Other)
  Sender: FDA-Public Use
  Company Number: ES-ROCHE-2109879

PATIENT
  Age: 54 Year
  Sex: Male
  Weight: 105 kg

DRUGS (2)
  1. ERIVEDGE [Suspect]
     Active Substance: VISMODEGIB
     Indication: BASAL CELL CARCINOMA
     Route: 048
     Dates: start: 20170111, end: 20180320
  2. ERIVEDGE [Suspect]
     Active Substance: VISMODEGIB
     Indication: BASAL CELL NAEVUS SYNDROME

REACTIONS (1)
  - Gastrointestinal perforation [Recovered/Resolved]

NARRATIVE: CASE EVENT DATE: 20180320
